FAERS Safety Report 5913222-5 (Version None)
Quarter: 2008Q4

REPORT INFORMATION
  Report Type: 
  Country: None (occurrence: None)
  Receive Date: 20081009
  Receipt Date: 20081007
  Transmission Date: 20090506
  Serious: Yes (Life-Threatening)
  Sender: FDA-Public Use
  Company Number: GB-BAYER-200812613BNE

PATIENT
  Age: 59 Year
  Sex: Female
  Weight: 99 kg

DRUGS (24)
  1. SORAFENIB [Suspect]
     Indication: NON-SMALL CELL LUNG CANCER
     Route: 048
     Dates: start: 20080903, end: 20080903
  2. SORAFENIB [Suspect]
     Route: 048
     Dates: start: 20080904, end: 20080906
  3. SORAFENIB [Suspect]
     Route: 048
     Dates: start: 20080907, end: 20080907
  4. SORAFENIB [Suspect]
     Route: 048
     Dates: start: 20080916, end: 20080921
  5. SORAFENIB [Suspect]
     Route: 048
     Dates: start: 20080922, end: 20080922
  6. SORAFENIB [Suspect]
     Route: 048
     Dates: start: 20080915, end: 20080915
  7. GEMCITABINE [Suspect]
     Indication: NON-SMALL CELL LUNG CANCER
     Dates: start: 20080903
  8. CISPLATIN [Suspect]
     Indication: NON-SMALL CELL LUNG CANCER
     Dates: start: 20080903
  9. ATENOLOL [Concomitant]
     Indication: HYPERTENSION
     Route: 048
     Dates: start: 20080627, end: 20080708
  10. ATENOLOL [Concomitant]
     Route: 048
     Dates: start: 20060101, end: 20080626
  11. RAMIPRIL [Concomitant]
     Indication: HYPERTENSION
     Dates: start: 20080708
  12. LANSOPRAZOLE [Concomitant]
     Indication: PROPHYLAXIS
     Dates: start: 20080709
  13. DOMPERIDONE [Concomitant]
     Indication: NAUSEA
     Dates: start: 20080704, end: 20080704
  14. DOMPERIDONE [Concomitant]
     Dates: start: 20080820
  15. APREPITANT [Concomitant]
     Indication: PROPHYLAXIS OF NAUSEA AND VOMITING
     Dates: start: 20080710, end: 20080711
  16. PYRIDOXINE HYDROCHLORIDE [Concomitant]
     Indication: PALMAR-PLANTAR ERYTHRODYSAESTHESIA SYNDROME
     Dates: start: 20080724, end: 20080807
  17. MICONAZOLE NITRATE [Concomitant]
     Indication: RASH
     Dates: start: 20080806, end: 20080810
  18. CLARITHROMYCIN [Concomitant]
     Indication: LOWER RESPIRATORY TRACT INFECTION
     Dates: start: 20080806, end: 20080813
  19. ACETAMINOPHEN [Concomitant]
     Indication: BACK PAIN
     Dates: start: 20080811
  20. PROCHLORPERIZINE [Concomitant]
     Indication: NAUSEA
     Dates: start: 20080820, end: 20080820
  21. PROCHLORPERIZINE [Concomitant]
     Dates: start: 20080820
  22. TRIMETHOPRIM [Concomitant]
     Indication: CYSTITIS
     Dates: start: 20080828, end: 20080830
  23. AQUEOUS CREAM [Concomitant]
     Indication: RASH
     Dates: start: 20080723
  24. BECLOMETHASONE DIPROPIONATE [Concomitant]
     Indication: WHEEZING
     Dates: start: 20080806

REACTIONS (1)
  - PULMONARY EMBOLISM [None]
